FAERS Safety Report 5159409-3 (Version None)
Quarter: 2006Q4

REPORT INFORMATION
  Report Type: 
  Country: None (occurrence: None)
  Receive Date: 20061121
  Receipt Date: 20061121
  Transmission Date: 20070319
  Serious: Yes (Hospitalization, Disabling)
  Sender: FDA-Public Use
  Company Number: None

PATIENT
  Age: 58 Year
  Sex: Female
  Weight: 49.8957 kg

DRUGS (2)
  1. LIDOCAINE [Suspect]
  2. FRAXEL PROCEDURE WITH LIDOCAINE CREAM USE [Concomitant]

REACTIONS (8)
  - ACCIDENTAL EXPOSURE [None]
  - BLINDNESS TRANSIENT [None]
  - CORNEAL DISORDER [None]
  - EYE IRRITATION [None]
  - INCORRECT ROUTE OF DRUG ADMINISTRATION [None]
  - INJURY CORNEAL [None]
  - LACRIMATION INCREASED [None]
  - MEDICATION ERROR [None]
